FAERS Safety Report 6064545-3 (Version None)
Quarter: 2009Q1

REPORT INFORMATION
  Report Type: 
  Country: None (occurrence: None)
  Receive Date: 20090204
  Receipt Date: 20090129
  Transmission Date: 20090719
  Serious: Yes (Hospitalization)
  Sender: FDA-Public Use
  Company Number: A0766635A

PATIENT
  Age: 70 Year
  Sex: Male
  Weight: 108.2 kg

DRUGS (3)
  1. AVANDIA [Suspect]
     Indication: TYPE 2 DIABETES MELLITUS
     Dosage: 8MG PER DAY
     Route: 048
     Dates: start: 20050101, end: 20080801
  2. HUMALOG [Concomitant]
  3. BYETTA [Concomitant]

REACTIONS (3)
  - CARDIOVASCULAR DISORDER [None]
  - HYPERTENSION [None]
  - MYOCARDIAL INFARCTION [None]
